FAERS Safety Report 8287207-0 (Version None)
Quarter: 2012Q2

REPORT INFORMATION
  Report Type: 
  Country: None (occurrence: None)
  Receive Date: 20120416
  Receipt Date: 20120403
  Transmission Date: 20120825
  Serious: Yes (Other)
  Sender: FDA-Public Use
  Company Number: AU-ROCHE-1038331

PATIENT
  Sex: Male

DRUGS (1)
  1. AVASTIN [Suspect]
     Indication: NEUROFIBROMATOSIS
     Route: 042
     Dates: start: 20110901, end: 20120118

REACTIONS (1)
  - HEMIPARESIS [None]
